FAERS Safety Report 13275470 (Version 1)
Quarter: 2017Q1

REPORT INFORMATION
  Report Type: Report from Study
  Country: CO (occurrence: CO)
  Receive Date: 20170228
  Receipt Date: 20170228
  Transmission Date: 20170428
  Serious: Yes (Death, Hospitalization)
  Sender: FDA-Public Use
  Company Number: CO-ROCHE-1655276

PATIENT
  Age: 68 Year
  Sex: Male

DRUGS (3)
  1. XELODA [Suspect]
     Active Substance: CAPECITABINE
     Indication: COLON CANCER
     Route: 048
     Dates: start: 20160511, end: 20160818
  2. AVASTIN [Suspect]
     Active Substance: BEVACIZUMAB
     Route: 042
     Dates: start: 20160511, end: 20160818
  3. AVASTIN [Suspect]
     Active Substance: BEVACIZUMAB
     Indication: COLON CANCER
     Route: 042
     Dates: start: 20150316, end: 20151005

REACTIONS (2)
  - Multiple organ dysfunction syndrome [Fatal]
  - Pneumonia [Recovered/Resolved]

NARRATIVE: CASE EVENT DATE: 20151014
